FAERS Safety Report 7805405-4 (Version None)
Quarter: 2011Q4

REPORT INFORMATION
  Report Type: 
  Country: None (occurrence: None)
  Receive Date: 20111010
  Receipt Date: 20111003
  Transmission Date: 20120403
  Serious: No
  Sender: FDA-Public Use
  Company Number: US-B.I. PHARMACEUTICALS,INC./RIDGEFIELD-2011-BP-23403BP

PATIENT
  Sex: Male

DRUGS (10)
  1. KLOR-CON [Concomitant]
     Indication: SUPPLEMENTATION THERAPY
  2. LISINOPRIL [Concomitant]
     Indication: BLOOD PRESSURE
  3. ZOCOR [Concomitant]
     Indication: BLOOD PRESSURE
  4. ZOLOFT [Concomitant]
     Indication: DEPRESSION
  5. DOXAZOSIN MESYLATE [Concomitant]
     Indication: BLOOD PRESSURE
  6. PRADAXA [Suspect]
     Indication: ATRIAL FIBRILLATION
     Route: 048
     Dates: start: 20110926
  7. HYDROCHLOROTHIAZIDE [Concomitant]
     Indication: BLOOD PRESSURE
  8. GLUCATROL [Concomitant]
     Indication: DIABETES MELLITUS
  9. MIRAPEX [Concomitant]
     Indication: RESTLESS LEGS SYNDROME
     Dates: start: 20110801
  10. MULTI-VITAMINS [Concomitant]
     Indication: SUPPLEMENTATION THERAPY

REACTIONS (1)
  - NIGHTMARE [None]
